FAERS Safety Report 14700225 (Version 2)
Quarter: 2018Q2

REPORT INFORMATION
  Report Type: Spontaneous
  Country: FR (occurrence: FR)
  Receive Date: 20180330
  Receipt Date: 20180423
  Transmission Date: 20180711
  Serious: Yes (Life-Threatening, Other)
  Sender: FDA-Public Use
  Company Number: FR-GILEAD-2018-0329413

PATIENT
  Age: 52 Year
  Sex: Male

DRUGS (9)
  1. NEBIVOLOL. [Concomitant]
     Active Substance: NEBIVOLOL
  2. TRULICITY [Concomitant]
     Active Substance: DULAGLUTIDE
  3. LEVITRA [Suspect]
     Active Substance: VARDENAFIL HYDROCHLORIDE TRIHYDRATE
     Indication: ERECTILE DYSFUNCTION
     Dosage: 20 MG, PRN
     Route: 048
     Dates: start: 2016
  4. COVERAM [Suspect]
     Active Substance: AMLODIPINE\PERINDOPRIL
     Indication: HYPERTENSION
  5. GENVOYA [Suspect]
     Active Substance: COBICISTAT\ELVITEGRAVIR\EMTRICITABINE\TENOFOVIR ALAFENAMIDE FUMARATE
     Indication: HIV INFECTION
     Route: 048
     Dates: start: 20180202, end: 20180216
  6. COVERAM [Suspect]
     Active Substance: AMLODIPINE\PERINDOPRIL
     Indication: HYPERTENSION
     Route: 048
  7. METFORMINE                         /00082701/ [Concomitant]
     Active Substance: METFORMIN HYDROCHLORIDE
  8. NEBIVOLOL. [Concomitant]
     Active Substance: NEBIVOLOL
     Route: 048
  9. METFORMINE [Concomitant]
     Active Substance: METFORMIN HYDROCHLORIDE
     Dosage: 1000 MG 1-0-2
     Route: 048

REACTIONS (2)
  - Incorrect dose administered [Unknown]
  - Lip oedema [Recovered/Resolved]

NARRATIVE: CASE EVENT DATE: 20180210
